FAERS Safety Report 9039357 (Version 1)
Quarter: 2013Q1

REPORT INFORMATION
  Report Type: Report from Study
  Country: US (occurrence: US)
  Receive Date: 20130129
  Receipt Date: 20130129
  Transmission Date: 20140127
  Serious: No
  Sender: FDA-Public Use
  Company Number: US-ABBOTT-12P-163-0896278-00

PATIENT
  Age: 71 Year
  Sex: Female

DRUGS (7)
  1. HUMIRA 40 MG/0.8 ML PEN [Suspect]
     Indication: CROHN^S DISEASE
     Dates: start: 20111208
  2. LIALDA [Concomitant]
     Indication: CROHN^S DISEASE
     Dosage: 2 TABS EVERY MORNING, 1.2GM
  3. ZOCOR [Concomitant]
     Indication: BLOOD TRIGLYCERIDES
  4. HYZAAR [Concomitant]
     Indication: BLOOD PRESSURE
     Dosage: 50/12.5MG, DAILY
  5. PREMARIN [Concomitant]
     Indication: PRODUCT USED FOR UNKNOWN INDICATION
  6. LORAZEPAM [Concomitant]
     Indication: ANXIETY
  7. FISH OIL [Concomitant]
     Indication: BLOOD TRIGLYCERIDES INCREASED

REACTIONS (8)
  - Insomnia [Recovering/Resolving]
  - Oedema peripheral [Unknown]
  - Oedema peripheral [Unknown]
  - Local swelling [Not Recovered/Not Resolved]
  - Joint swelling [Not Recovered/Not Resolved]
  - Local swelling [Not Recovered/Not Resolved]
  - Swelling face [Not Recovered/Not Resolved]
  - Rectal haemorrhage [Not Recovered/Not Resolved]
